FAERS Safety Report 6106441-9 (Version None)
Quarter: 2009Q1

REPORT INFORMATION
  Report Type: 
  Country: None (occurrence: None)
  Receive Date: 20090306
  Receipt Date: 20090227
  Transmission Date: 20090719
  Serious: Yes (Life-Threatening)
  Sender: FDA-Public Use
  Company Number: US-GENENTECH-278348

PATIENT
  Sex: Male
  Weight: 5 kg

DRUGS (2)
  1. CATHFLO ACTIVASE [Suspect]
     Indication: CATHETER RELATED COMPLICATION
     Dosage: 0.17 ML, X2
     Route: 050
     Dates: start: 20090113
  2. LOVENOX [Concomitant]
     Indication: COAGULOPATHY
     Dosage: UNK

REACTIONS (2)
  - DRUG INEFFECTIVE [None]
  - HAEMORRHAGE INTRACRANIAL [None]
